FAERS Safety Report 5880165-5 (Version None)
Quarter: 2008Q3

REPORT INFORMATION
  Report Type: 
  Country: None (occurrence: None)
  Receive Date: 20080910
  Receipt Date: 20080910
  Transmission Date: 20090109
  Serious: Yes (Other)
  Sender: FDA-Public Use
  Company Number: None

PATIENT
  Age: 9 Month
  Sex: Female
  Weight: 7.7111 kg

DRUGS (2)
  1. CREON [Suspect]
     Indication: CYSTIC FIBROSIS
     Dosage: 3 CAPSULES EVERY BOTTLE MEAL PO
     Route: 048
     Dates: start: 20080101, end: 20080908
  2. CREON [Suspect]
     Indication: PANCREATIC INSUFFICIENCY
     Dosage: 3 CAPSULES EVERY BOTTLE MEAL PO
     Route: 048
     Dates: start: 20080101, end: 20080908

REACTIONS (1)
  - PAIN [None]
